FAERS Safety Report 14425558 (Version 1)
Quarter: 2018Q1

REPORT INFORMATION
  Report Type: Spontaneous
  Country: US (occurrence: US)
  Receive Date: 20180122
  Receipt Date: 20180122
  Transmission Date: 20180509
  Serious: Yes (Disabling)
  Sender: FDA-Public Use
  Company Number: None

PATIENT
  Age: 45 Year
  Sex: Female
  Weight: 49.95 kg

DRUGS (8)
  1. ADDERALL XR [Suspect]
     Active Substance: AMPHETAMINE ASPARTATE\AMPHETAMINE SULFATE\DEXTROAMPHETAMINE SACCHARATE\DEXTROAMPHETAMINE SULFATE
     Indication: ATTENTION DEFICIT/HYPERACTIVITY DISORDER
     Dosage: ?          QUANTITY:90 CAPSULE(S);?
     Route: 048
  2. BIOTIN [Concomitant]
     Active Substance: BIOTIN
  3. BLACK CASTOR OIL [Concomitant]
  4. CLARITIN [Concomitant]
     Active Substance: LORATADINE
  5. NAPROXEN. [Concomitant]
     Active Substance: NAPROXEN
  6. OMEPRAZOLE. [Concomitant]
     Active Substance: OMEPRAZOLE
  7. PEPCID [Concomitant]
     Active Substance: FAMOTIDINE
  8. ZYRTEC [Concomitant]
     Active Substance: CETIRIZINE HYDROCHLORIDE

REACTIONS (5)
  - Economic problem [None]
  - Emotional disorder [None]
  - Alopecia [None]
  - Emotional distress [None]
  - Loss of personal independence in daily activities [None]

NARRATIVE: CASE EVENT DATE: 20150803
